FAERS Safety Report 8622943-5 (Version None)
Quarter: 2012Q3

REPORT INFORMATION
  Report Type: 
  Country: None (occurrence: None)
  Receive Date: 20120827
  Receipt Date: 20120823
  Transmission Date: 20120928
  Serious: Yes (Death)
  Sender: FDA-Public Use
  Company Number: PHHY2012CA048218

PATIENT
  Sex: Male

DRUGS (2)
  1. CLOZARIL [Suspect]
     Dosage: 200 MG, QHS
     Route: 048
     Dates: end: 20101110
  2. CLOZARIL [Suspect]
     Indication: SCHIZOPHRENIA, DISORGANISED TYPE
     Dosage: 125 MG, QHS
     Route: 048
     Dates: start: 20101109

REACTIONS (2)
  - DEATH [None]
  - FATIGUE [None]
